FAERS Safety Report 22644845 (Version 1)
Quarter: 2023Q2

REPORT INFORMATION
  Report Type: Report from Study
  Country: CA (occurrence: CA)
  Receive Date: 20230627
  Receipt Date: 20230627
  Transmission Date: 20230721
  Serious: Yes (Hospitalization, Other)
  Sender: FDA-Public Use
  Company Number: CA-ABBVIE-5305167

PATIENT
  Age: 79 Year
  Sex: Male

DRUGS (1)
  1. LUPRON DEPOT [Suspect]
     Active Substance: LEUPROLIDE ACETATE
     Indication: Prostate cancer
     Route: 030
     Dates: start: 20220323

REACTIONS (5)
  - Thrombosis in device [Unknown]
  - Haematuria [Recovered/Resolved]
  - Urinary retention [Unknown]
  - Dysuria [Unknown]
  - Device occlusion [Unknown]

NARRATIVE: CASE EVENT DATE: 20230501
